FAERS Safety Report 9352265 (Version 1)
Quarter: 2013Q2

REPORT INFORMATION
  Report Type: Report from Study
  Country: US (occurrence: US)
  Receive Date: 20130617
  Receipt Date: 20130617
  Transmission Date: 20140414
  Serious: Yes (Other)
  Sender: FDA-Public Use
  Company Number: US-ABBOTT-13P-163-1079050-00

PATIENT
  Age: 46 Year
  Sex: Female
  Weight: 61.74 kg

DRUGS (6)
  1. HUMIRA [Suspect]
     Indication: CROHN^S DISEASE
     Route: 058
     Dates: start: 20130412, end: 20130412
  2. HUMIRA [Suspect]
     Route: 058
  3. LIALDA [Concomitant]
     Indication: CROHN^S DISEASE
  4. LIALDA [Concomitant]
     Dosage: TWO PILLS DAILY
  5. IRON [Concomitant]
     Indication: MINERAL SUPPLEMENTATION
  6. VITAMIN C [Concomitant]
     Indication: VITAMIN SUPPLEMENTATION

REACTIONS (3)
  - Menorrhagia [Not Recovered/Not Resolved]
  - Uterovaginal prolapse [Unknown]
  - Uterine enlargement [Unknown]
